FAERS Safety Report 7221374-2 (Version None)
Quarter: 2011Q1

REPORT INFORMATION
  Report Type: 
  Country: None (occurrence: None)
  Receive Date: 20110112
  Receipt Date: 20110107
  Transmission Date: 20110831
  Serious: Yes (Other)
  Sender: FDA-Public Use
  Company Number: US-ROXANE LABORATORIES, INC.-2011-RO-00032RO

PATIENT
  Age: 8 Year
  Sex: Female

DRUGS (4)
  1. SIROLIMUS [Suspect]
     Indication: AUTOIMMUNE HEPATITIS
  2. AZATHIOPRINE [Suspect]
     Indication: CHOLANGITIS SCLEROSING
  3. URSODIOL [Suspect]
     Indication: CHOLANGITIS SCLEROSING
  4. AZATHIOPRINE [Suspect]
     Indication: AUTOIMMUNE HEPATITIS

REACTIONS (2)
  - CHOLANGITIS SCLEROSING [None]
  - HEPATOTOXICITY [None]
